FAERS Safety Report 24254314 (Version 1)
Quarter: 2024Q3

REPORT INFORMATION
  Report Type: Spontaneous
  Country: US (occurrence: US)
  Receive Date: 20240827
  Receipt Date: 20240827
  Transmission Date: 20241016
  Serious: Yes (Other)
  Sender: OTSUKA
  Company Number: US-OTSUKA-2024_020724

PATIENT
  Age: 88 Year
  Sex: Female
  Weight: 76.65 kg

DRUGS (3)
  1. REXULTI [Suspect]
     Active Substance: BREXPIPRAZOLE
     Indication: Agitation
     Dosage: UNK
     Route: 065
  2. REXULTI [Suspect]
     Active Substance: BREXPIPRAZOLE
     Dosage: TITRATED TO 2 MG, QD
     Route: 048
     Dates: end: 20240709
  3. SEROQUEL [Suspect]
     Active Substance: QUETIAPINE FUMARATE
     Indication: Agitation
     Dosage: 200 MG, BID
     Route: 065

REACTIONS (3)
  - Hallucination [Unknown]
  - Anger [Unknown]
  - Agitation [Unknown]

NARRATIVE: CASE EVENT DATE: 20240517
